FAERS Safety Report 5798941-6 (Version None)
Quarter: 2008Q3

REPORT INFORMATION
  Report Type: 
  Country: None (occurrence: None)
  Receive Date: 20080702
  Receipt Date: 20080626
  Transmission Date: 20090109
  Serious: Yes (Hospitalization, Other)
  Sender: FDA-Public Use
  Company Number: US-PFIZER INC-2006097236

PATIENT
  Sex: Female
  Weight: 59 kg

DRUGS (16)
  1. CHANTIX [Suspect]
     Indication: SMOKING CESSATION THERAPY
     Dates: start: 20060731, end: 20070511
  2. LIPITOR [Suspect]
     Indication: BLOOD CHOLESTEROL INCREASED
  3. BEXTRA [Suspect]
     Indication: PAIN
     Dates: start: 20030101, end: 20030101
  4. OTHER NUTRIENTS [Suspect]
     Dosage: FREQ:4-5 COKES A DAY
  5. NORVASC [Concomitant]
  6. LISINOPRIL [Concomitant]
  7. PLAVIX [Concomitant]
  8. FOSAMAX [Concomitant]
  9. NEXIUM [Concomitant]
  10. PREMARIN [Concomitant]
  11. TOPROL-XL [Concomitant]
  12. ZETIA [Concomitant]
  13. ACETYLSALICYLIC ACID SRT [Concomitant]
  14. ADVAIR DISKUS 100/50 [Concomitant]
  15. PROPRANOLOL [Concomitant]
  16. VIOXX [Concomitant]

REACTIONS (23)
  - ASTHENIA [None]
  - BLOOD CHOLESTEROL INCREASED [None]
  - DETOXIFICATION [None]
  - DISTURBANCE IN ATTENTION [None]
  - DYSGEUSIA [None]
  - DYSPNOEA [None]
  - LIVER DISORDER [None]
  - MEMORY IMPAIRMENT [None]
  - MUSCLE SPASMS [None]
  - MUSCLE STRAIN [None]
  - MYALGIA [None]
  - MYOCARDIAL INFARCTION [None]
  - NAUSEA [None]
  - NEPHROLITHIASIS [None]
  - OEDEMA [None]
  - PAIN IN EXTREMITY [None]
  - PULMONARY OEDEMA [None]
  - RENAL IMPAIRMENT [None]
  - STOMACH DISCOMFORT [None]
  - SWELLING FACE [None]
  - TOBACCO USER [None]
  - URETERIC OBSTRUCTION [None]
  - WHITE BLOOD CELL COUNT INCREASED [None]
